FAERS Safety Report 22296219 (Version 1)
Quarter: 2023Q2

REPORT INFORMATION
  Report Type: Spontaneous
  Country: US (occurrence: US)
  Receive Date: 20230508
  Receipt Date: 20230508
  Transmission Date: 20230721
  Serious: Yes (Disabling, Other)
  Sender: FDA-Public Use
  Company Number: US-AMERICAN REGENT INC-2023001036

PATIENT
  Age: 39 Year
  Sex: Female
  Weight: 74.739 kg

DRUGS (3)
  1. FERRIC CARBOXYMALTOSE [Suspect]
     Active Substance: FERRIC CARBOXYMALTOSE
     Indication: Iron deficiency anaemia
     Dosage: UNK, SINGLE
     Route: 042
     Dates: start: 20220727, end: 20220727
  2. FERRIC CARBOXYMALTOSE [Suspect]
     Active Substance: FERRIC CARBOXYMALTOSE
     Dosage: UNK, SINGLE
     Route: 042
     Dates: start: 20221228, end: 20221228
  3. FERRIC CARBOXYMALTOSE [Suspect]
     Active Substance: FERRIC CARBOXYMALTOSE
     Dosage: UNK, SINGLE
     Route: 042
     Dates: start: 20230104, end: 20230104

REACTIONS (16)
  - Myalgia [Not Recovered/Not Resolved]
  - General physical health deterioration [Unknown]
  - Depression [Unknown]
  - Pain [Unknown]
  - Crying [Unknown]
  - Pain in extremity [Unknown]
  - Limb discomfort [Unknown]
  - Lethargy [Unknown]
  - Asthenia [Unknown]
  - Anxiety [Unknown]
  - Hypophosphataemia [Not Recovered/Not Resolved]
  - Headache [Unknown]
  - Paraesthesia [Unknown]
  - Dyspnoea exertional [Recovered/Resolved]
  - Nausea [Recovered/Resolved]
  - Infusion site swelling [Recovered/Resolved]

NARRATIVE: CASE EVENT DATE: 20230104
